FAERS Safety Report 6565313-6 (Version None)
Quarter: 2010Q1

REPORT INFORMATION
  Report Type: 
  Country: None (occurrence: None)
  Receive Date: 20100201
  Receipt Date: 20100127
  Transmission Date: 20100710
  Serious: Yes (Life-Threatening, Hospitalization)
  Sender: FDA-Public Use
  Company Number: AT-ASTRAZENECA-2010SE00429

PATIENT
  Age: 15321 Day
  Sex: Female
  Weight: 78 kg

DRUGS (20)
  1. SEROQUEL [Suspect]
     Indication: SCHIZOAFFECTIVE DISORDER
     Route: 048
     Dates: start: 19900101
  2. SEROQUEL [Suspect]
     Route: 048
  3. SEROQUEL [Suspect]
     Route: 048
     Dates: start: 20071201, end: 20100112
  4. TRAZODONE HCL [Concomitant]
     Indication: SCHIZOAFFECTIVE DISORDER
     Dates: start: 19900101
  5. TRAZODONE HCL [Concomitant]
     Dates: start: 19900101
  6. TRAZODONE HCL [Concomitant]
  7. TRAZODONE HCL [Concomitant]
  8. TRAZODONE HCL [Concomitant]
     Dates: start: 20071227, end: 20100112
  9. TRAZODONE HCL [Concomitant]
     Dates: start: 20071227, end: 20100112
  10. MUTAN [Concomitant]
     Indication: BORDERLINE PERSONALITY DISORDER
     Dates: start: 19900101
  11. MUTAN [Concomitant]
     Dates: start: 20071227, end: 20100112
  12. NOZINAN [Concomitant]
     Indication: MANIA
     Dates: start: 19900101
  13. NOZINAN [Concomitant]
     Indication: SLEEP DISORDER
     Dates: start: 19900101
  14. NOZINAN [Concomitant]
     Indication: SCHIZOAFFECTIVE DISORDER
     Dates: start: 19900101
  15. NOZINAN [Concomitant]
  16. NOZINAN [Concomitant]
  17. NOZINAN [Concomitant]
  18. NOZINAN [Concomitant]
     Dates: start: 20071227, end: 20100112
  19. NOZINAN [Concomitant]
     Dates: start: 20071227, end: 20100112
  20. NOZINAN [Concomitant]
     Dates: start: 20071227, end: 20100112

REACTIONS (10)
  - ALOPECIA [None]
  - BREAST SWELLING [None]
  - CONSTIPATION [None]
  - GENERALISED OEDEMA [None]
  - ILEUS [None]
  - LIPID METABOLISM DISORDER [None]
  - MEGACOLON [None]
  - MENSTRUAL DISORDER [None]
  - THYROID DISORDER [None]
  - WEIGHT INCREASED [None]
